FAERS Safety Report 9613180 (Version 6)
Quarter: 2014Q1

REPORT INFORMATION
  Report Type: Spontaneous
  Country: US (occurrence: US)
  Receive Date: 20131010
  Receipt Date: 20140311
  Transmission Date: 20141002
  Serious: Yes (Hospitalization, Disabling, Other)
  Sender: FDA-Public Use
  Company Number: US-009507513-1310USA004215

PATIENT
  Sex: Female
  Weight: 54.42 kg

DRUGS (6)
  1. JANUMET [Suspect]
     Indication: TYPE 2 DIABETES MELLITUS
     Dosage: 50/1000 MG, BID
     Route: 048
     Dates: end: 20110221
  2. JANUMET [Suspect]
     Dosage: 50/500 MG BID
     Route: 048
  3. GLIMEPIRIDE [Concomitant]
     Indication: TYPE 2 DIABETES MELLITUS
  4. SIMVASTATIN [Concomitant]
     Indication: HYPERCHOLESTEROLAEMIA
     Dosage: UNK
     Dates: start: 20070527, end: 20110622
  5. OMEGA-3 MARINE TRIGLYCERIDES [Concomitant]
     Indication: HYPERCHOLESTEROLAEMIA
     Dosage: UNK
  6. ZOCOR [Concomitant]
     Indication: HYPERCHOLESTEROLAEMIA
     Dosage: UNK
     Route: 048

REACTIONS (33)
  - Pancreatic carcinoma [Unknown]
  - Endotracheal intubation [Unknown]
  - Gastrectomy [Unknown]
  - Chest pain [Unknown]
  - Gastrectomy [Unknown]
  - Peptic ulcer [Unknown]
  - Gastrointestinal haemorrhage [Recovered/Resolved]
  - Haemangioma of liver [Unknown]
  - Herpes zoster [Unknown]
  - Thyroid neoplasm [Unknown]
  - Hypertension [Unknown]
  - Gastrooesophageal reflux disease [Unknown]
  - Mitral valve prolapse [Unknown]
  - Abnormal loss of weight [Unknown]
  - Hepatic lesion [Unknown]
  - Tachycardia [Unknown]
  - Osteopenia [Unknown]
  - Packed red blood cell transfusion [Unknown]
  - Duodenal ulcer [Unknown]
  - Salpingo-oophorectomy bilateral [Unknown]
  - Hysterectomy [Unknown]
  - Vitamin B12 deficiency [Unknown]
  - Weight decreased [Unknown]
  - Weight decreased [Unknown]
  - Depression [Unknown]
  - Decreased appetite [Unknown]
  - Dyspepsia [Unknown]
  - Decreased appetite [Unknown]
  - Night sweats [Unknown]
  - Haematuria [Unknown]
  - Rectal haemorrhage [Unknown]
  - Urinary tract infection [Recovered/Resolved]
  - Back pain [Unknown]
